FAERS Safety Report 7209390-8 (Version None)
Quarter: 2011Q1

REPORT INFORMATION
  Report Type: 
  Country: None (occurrence: None)
  Receive Date: 20110104
  Receipt Date: 20101227
  Transmission Date: 20110831
  Serious: Yes (Other)
  Sender: FDA-Public Use
  Company Number: US-TEVA-261305USA

PATIENT
  Age: 37 Year
  Sex: Female

DRUGS (1)
  1. PHENTERMINE HYDROCHLORIDE 37.5 MG [Suspect]
     Indication: WEIGHT DECREASED

REACTIONS (1)
  - COLITIS ISCHAEMIC [None]
